FAERS Safety Report 5507700-0 (Version None)
Quarter: 2007Q4

REPORT INFORMATION
  Report Type: 
  Country: None (occurrence: None)
  Receive Date: 20071105
  Receipt Date: 20071105
  Transmission Date: 20080405
  Serious: No
  Sender: FDA-Public Use
  Company Number: None

PATIENT
  Sex: Female
  Weight: 72.5755 kg

DRUGS (1)
  1. TRAMADOL HCL [Suspect]
     Indication: MIGRAINE
     Dosage: 2 TABS 1 TIME PO
     Route: 048
     Dates: start: 20071101, end: 20071102

REACTIONS (7)
  - DIZZINESS [None]
  - DYSSTASIA [None]
  - ERYTHEMA [None]
  - FEELING ABNORMAL [None]
  - NAUSEA [None]
  - PRURITUS [None]
  - VOMITING [None]
